FAERS Safety Report 7606554-6 (Version None)
Quarter: 2011Q3

REPORT INFORMATION
  Report Type: 
  Country: None (occurrence: None)
  Receive Date: 20110713
  Receipt Date: 20110630
  Transmission Date: 20111222
  Serious: Yes (Other)
  Sender: FDA-Public Use
  Company Number: PHHY2011US36490

PATIENT
  Sex: Male
  Weight: 104.31 kg

DRUGS (5)
  1. ASPIRIN [Concomitant]
     Dosage: 325 MG, UNK
     Route: 048
  2. GLEEVEC [Suspect]
     Indication: CHRONIC MYELOID LEUKAEMIA
     Dosage: 400 MG, QD
     Route: 048
     Dates: start: 20090101
  3. ZESTORETIC [Concomitant]
     Indication: HYPERTENSION
     Dosage: 1 DF (25 MG HYDROCHLOROTHIAZUDE/ 20 MG LISINOPRIL
     Route: 048
  4. ZOCOR [Concomitant]
     Indication: BLOOD CHOLESTEROL INCREASED
     Dosage: 80 MG, UNK
     Route: 048
  5. TOPROL-XL [Concomitant]
     Indication: HYPERTENSION
     Dosage: 50 MG, UNK

REACTIONS (5)
  - DYSPHONIA [None]
  - LARYNGEAL MASS [None]
  - THROAT TIGHTNESS [None]
  - NAUSEA [None]
  - RALES [None]
